FAERS Safety Report 12154045 (Version 1)
Quarter: 2016Q1

REPORT INFORMATION
  Report Type: Spontaneous
  Country: FR (occurrence: FR)
  Receive Date: 20160307
  Receipt Date: 20160307
  Transmission Date: 20160526
  Serious: Yes (Hospitalization)
  Sender: FDA-Public Use
  Company Number: FR-AMGEN-FRASP2016026988

PATIENT
  Age: 81 Year
  Sex: Male

DRUGS (11)
  1. AMLOR [Concomitant]
     Active Substance: AMLODIPINE BESYLATE
     Dosage: UNK
  2. DOLIPRANE [Concomitant]
     Active Substance: ACETAMINOPHEN
     Dosage: UNK
  3. CORDARONE [Concomitant]
     Active Substance: AMIODARONE HYDROCHLORIDE
     Dosage: 200 MG, UNK
  4. LASILIX                            /00032601/ [Concomitant]
     Active Substance: FUROSEMIDE
     Dosage: UNK
  5. CRESTOR [Concomitant]
     Active Substance: ROSUVASTATIN CALCIUM
     Dosage: 10 MG, UNK
  6. VASTAREL [Concomitant]
     Active Substance: TRIMETAZIDINE DIHYDROCHLORIDE
     Dosage: UNK
  7. PROCORALAN [Suspect]
     Active Substance: IVABRADINE
     Indication: PRODUCT USED FOR UNKNOWN INDICATION
     Dosage: UNK
     Route: 048
  8. PROCORALAN [Suspect]
     Active Substance: IVABRADINE
     Indication: PRODUCT USE ISSUE
  9. GLYCERYL TRINITRATE [Concomitant]
     Active Substance: NITROGLYCERIN
     Dosage: UNK
  10. KARDEGIC [Concomitant]
     Active Substance: ASPIRIN LYSINE
     Dosage: 160 MG, UNK
  11. BISOPROLOL [Suspect]
     Active Substance: BISOPROLOL
     Indication: PRODUCT USED FOR UNKNOWN INDICATION
     Dosage: 10 MG, QD
     Route: 048

REACTIONS (3)
  - Respiratory distress [Not Recovered/Not Resolved]
  - Bradycardia [Not Recovered/Not Resolved]
  - Atrioventricular block complete [Not Recovered/Not Resolved]

NARRATIVE: CASE EVENT DATE: 20151113
